FAERS Safety Report 23979530 (Version 1)
Quarter: 2024Q2

REPORT INFORMATION
  Report Type: Spontaneous
  Country: US (occurrence: US)
  Receive Date: 20240616
  Receipt Date: 20240616
  Transmission Date: 20240716
  Serious: Yes (Other)
  Sender: FDA-Public Use
  Company Number: US-BRISTOL-MYERS SQUIBB COMPANY-2024-092561

PATIENT
  Age: 77 Year
  Sex: Male
  Weight: 104.5 kg

DRUGS (1)
  1. REVLIMID [Suspect]
     Active Substance: LENALIDOMIDE
     Indication: Plasma cell myeloma
     Dosage: DOSE : UNKNOWN;     FREQ : ONCE DAILY FOR 21 DAYS 7 DAYS OFF
     Route: 048
     Dates: start: 20240523

REACTIONS (1)
  - Cytopenia [Recovering/Resolving]
